FAERS Safety Report 4582169-1 (Version None)
Quarter: 2005Q1

REPORT INFORMATION
  Report Type: 
  Country: None (occurrence: None)
  Receive Date: 20050210
  Receipt Date: 20050128
  Transmission Date: 20050727
  Serious: Yes (Hospitalization, Disabling, Other)
  Sender: FDA-Public Use
  Company Number: 2005023670

PATIENT
  Sex: Female
  Weight: 58.9676 kg

DRUGS (10)
  1. CELEBREX [Suspect]
     Indication: MUSCULOSKELETAL STIFFNESS
     Dosage: ORAL
     Route: 048
  2. NEOSPORIN [Suspect]
     Indication: ILL-DEFINED DISORDER
     Dosage: TOPICAL
     Route: 061
  3. FUROSEMIDE [Concomitant]
  4. DIGOXIN [Concomitant]
  5. WARFARIN SODIUM (WARFARIN SODUM) [Concomitant]
  6. POTASSIUM CHLORIDE [Concomitant]
  7. CYANOCOBALAMIN (CYANOCOBALAMIN) [Concomitant]
  8. OMEGA-3 TRIGLYCERIDES (OMEGA-3 TRIGLYCERIDES) [Concomitant]
  9. OCUVITE (ASCORBIC ACID, RETINOL, TOCOPHEROL) [Concomitant]
  10. ALENDRONATE SODIUM [Concomitant]

REACTIONS (12)
  - ASTHENIA [None]
  - DYSPNOEA [None]
  - EATING DISORDER [None]
  - ERUCTATION [None]
  - FIBROMYALGIA [None]
  - FLATULENCE [None]
  - GAIT DISTURBANCE [None]
  - LIVER DISORDER [None]
  - MUSCLE SPASMS [None]
  - MYOPATHY [None]
  - PULMONARY HYPERTENSION [None]
  - PULMONARY OEDEMA [None]
